FAERS Safety Report 9152916 (Version 2)
Quarter: 2013Q1

REPORT INFORMATION
  Report Type: Spontaneous
  Country: US (occurrence: US)
  Receive Date: 20130308
  Receipt Date: 20130329
  Transmission Date: 20140127
  Serious: Yes (Hospitalization, Other)
  Sender: FDA-Public Use
  Company Number: US-RB-050750-13

PATIENT
  Age: 29 Year
  Sex: Female

DRUGS (2)
  1. SUBOXONE TABLET [Suspect]
     Indication: DRUG DEPENDENCE
     Route: 060
     Dates: start: 2009, end: 20120623
  2. SUBUTEX [Suspect]
     Indication: DRUG DEPENDENCE
     Route: 060
     Dates: start: 20120624

REACTIONS (7)
  - Convulsion [Not Recovered/Not Resolved]
  - Victim of sexual abuse [Recovered/Resolved]
  - Victim of crime [Recovered/Resolved]
  - Tooth fracture [Not Recovered/Not Resolved]
  - Facial bones fracture [Not Recovered/Not Resolved]
  - Thermal burn [Recovered/Resolved]
  - Depression [Not Recovered/Not Resolved]
